FAERS Safety Report 4993512-3 (Version None)
Quarter: 2006Q2

REPORT INFORMATION
  Report Type: 
  Country: None (occurrence: None)
  Receive Date: 20060505
  Receipt Date: 20060427
  Transmission Date: 20061013
  Serious: Yes (Other)
  Sender: FDA-Public Use
  Company Number: 2006AP02013

PATIENT
  Age: 87 Year
  Sex: Female

DRUGS (5)
  1. OMEPRAL [Suspect]
     Indication: REFLUX OESOPHAGITIS
     Route: 048
     Dates: start: 20060407, end: 20060413
  2. WARFARIN SODIUM [Suspect]
     Indication: CEREBRAL INFARCTION
     Route: 048
     Dates: start: 20060331, end: 20060408
  3. WARFARIN SODIUM [Suspect]
     Indication: ATRIAL FIBRILLATION
     Route: 048
     Dates: start: 20060331, end: 20060408
  4. PREDONINE [Concomitant]
     Route: 048
     Dates: start: 20060301, end: 20060408
  5. ZANTAC [Concomitant]
     Indication: REFLUX OESOPHAGITIS
     Route: 048
     Dates: end: 20060407

REACTIONS (3)
  - DRUG INTERACTION [None]
  - INTERNATIONAL NORMALISED RATIO ABNORMAL [None]
  - MELAENA [None]
